FAERS Safety Report 5125900-9 (Version None)
Quarter: 2006Q4

REPORT INFORMATION
  Report Type: 
  Country: None (occurrence: None)
  Receive Date: 20061012
  Receipt Date: 20061006
  Transmission Date: 20070319
  Serious: Yes (Death)
  Sender: FDA-Public Use
  Company Number: JP-JPN-A200604060

PATIENT
  Age: 52 Year
  Sex: Female

DRUGS (3)
  1. ALKERAN [Suspect]
     Indication: DRUG USE FOR UNKNOWN INDICATION
     Dosage: 188MG CUMULATIVE DOSE
     Route: 048
     Dates: start: 20050101
  2. PREDONINE [Concomitant]
     Indication: DRUG USE FOR UNKNOWN INDICATION
     Route: 048
     Dates: start: 20050101
  3. THALIDOMIDE [Concomitant]
     Indication: DRUG USE FOR UNKNOWN INDICATION
     Dosage: 100MG PER DAY
     Route: 048
     Dates: start: 20050101

REACTIONS (2)
  - ACUTE MYELOID LEUKAEMIA [None]
  - PLASMACYTOMA [None]
